FAERS Safety Report 25463180 (Version 1)
Quarter: 2025Q2

REPORT INFORMATION
  Report Type: Spontaneous
  Country: US (occurrence: None)
  Receive Date: 20250612
  Receipt Date: 20250612
  Transmission Date: 20250716
  Serious: Yes (unspecified)
  Sender: FDA-CTU
  Company Number: None

PATIENT
  Age: 67 Year
  Weight: 67.59 kg

DRUGS (1)
  1. SEMAGLUTIDE [Suspect]
     Active Substance: SEMAGLUTIDE

REACTIONS (4)
  - Constipation [None]
  - Large intestine perforation [None]
  - Colitis [None]
  - Unevaluable event [None]

NARRATIVE: CASE EVENT DATE: 20250608
